FAERS Safety Report 21083408 (Version 1)
Quarter: 2022Q3

REPORT INFORMATION
  Report Type: Spontaneous
  Country: US (occurrence: None)
  Receive Date: 20220714
  Receipt Date: 20220714
  Transmission Date: 20221027
  Serious: No
  Sender: FDA-Public Use
  Company Number: None

PATIENT
  Sex: Female

DRUGS (1)
  1. MAVENCLAD [Suspect]
     Active Substance: CLADRIBINE
     Indication: Multiple sclerosis
     Dosage: OTHER FREQUENCY : DAYS 1-5;?
     Route: 048
     Dates: start: 202206

REACTIONS (6)
  - COVID-19 [None]
  - Therapy interrupted [None]
  - Abdominal pain upper [None]
  - Back pain [None]
  - Oxygen saturation decreased [None]
  - Arthralgia [None]
